FAERS Safety Report 6773182-4 (Version None)
Quarter: 2010Q2

REPORT INFORMATION
  Report Type: 
  Country: None (occurrence: None)
  Receive Date: 20100616
  Receipt Date: 20100610
  Transmission Date: 20101027
  Serious: Yes (Other)
  Sender: FDA-Public Use
  Company Number: CHPA2010AR09843

PATIENT
  Age: 24 Year
  Sex: Female

DRUGS (2)
  1. NICOTINELL GUM (NCH) [Suspect]
     Indication: SMOKING CESSATION THERAPY
     Dosage: 4 MG, QD
     Route: 048
     Dates: start: 20100610
  2. CORTICOSTEROIDS [Concomitant]
     Indication: VOCAL CORD INFLAMMATION
     Dosage: UNK, UNK
     Route: 065

REACTIONS (5)
  - AGITATION [None]
  - FEELING ABNORMAL [None]
  - FLUSHING [None]
  - HYPERSENSITIVITY [None]
  - SWELLING FACE [None]
